FAERS Safety Report 21247262 (Version 1)
Quarter: 2022Q3

REPORT INFORMATION
  Report Type: Spontaneous
  Country: US (occurrence: None)
  Receive Date: 20220823
  Receipt Date: 20220823
  Transmission Date: 20221027
  Serious: Yes (Other)
  Sender: FDA-Public Use
  Company Number: None

PATIENT
  Sex: Female

DRUGS (4)
  1. ORENCIA [Suspect]
     Active Substance: ABATACEPT
     Indication: Rheumatoid arthritis
     Dosage: FREQUENCY:INJECT 1 PEN UNDER THE SKIN SUBCUTANEOUS EVERY 7 DAYS
     Route: 058
     Dates: start: 20210729
  2. AMLODIPINE [Concomitant]
     Active Substance: AMLODIPINE BESYLATE
  3. PREVMAR [Concomitant]
  4. SHINGRIX INJ [Concomitant]

REACTIONS (4)
  - Postoperative wound infection [None]
  - Impaired healing [None]
  - Pain [None]
  - Loss of personal independence in daily activities [None]
